FAERS Safety Report 4581082-3 (Version None)
Quarter: 2005Q1

REPORT INFORMATION
  Report Type: 
  Country: None (occurrence: None)
  Receive Date: 20050214
  Receipt Date: 20040802
  Transmission Date: 20050727
  Serious: No
  Sender: FDA-Public Use
  Company Number: US-GLAXOSMITHKLINE-A0520560A

PATIENT
  Sex: Female

DRUGS (3)
  1. LAMICTAL [Suspect]
     Indication: EPILEPSY
     Dosage: 700MG PER DAY
     Route: 048
  2. GABATRIL [Concomitant]
  3. EFFEXOR [Concomitant]

REACTIONS (1)
  - SLEEP APNOEA SYNDROME [None]
